FAERS Safety Report 4328372-7 (Version None)
Quarter: 2004Q1

REPORT INFORMATION
  Report Type: 
  Country: None (occurrence: None)
  Receive Date: 20040331
  Receipt Date: 20040323
  Transmission Date: 20041129
  Serious: Yes (Hospitalization)
  Sender: FDA-Public Use
  Company Number: PHRM2004FR01346

PATIENT
  Age: 59 Year
  Sex: Male
  Weight: 120 kg

DRUGS (4)
  1. LESCOL [Suspect]
     Dosage: 80 MG, QD
     Route: 048
     Dates: start: 20031017, end: 20040314
  2. ZYLORIC [Concomitant]
     Route: 048
  3. COAPROVEL [Concomitant]
     Route: 048
  4. VASTAREL [Concomitant]
     Dosage: UNK, UNK
     Route: 048

REACTIONS (5)
  - BLOOD CREATINE PHOSPHOKINASE INCREASED [None]
  - BLOOD LACTATE DEHYDROGENASE INCREASED [None]
  - LOSS OF CONSCIOUSNESS [None]
  - MALAISE [None]
  - MUSCLE CRAMP [None]
